FAERS Safety Report 8595535-4 (Version None)
Quarter: 2012Q3

REPORT INFORMATION
  Report Type: 
  Country: None (occurrence: None)
  Receive Date: 20120815
  Receipt Date: 20120806
  Transmission Date: 20120928
  Serious: No
  Sender: FDA-Public Use
  Company Number: US-ASTRAZENECA-2012SE55423

PATIENT
  Age: 64 Year
  Sex: Female
  Weight: 60.8 kg

DRUGS (2)
  1. NEXIUM [Suspect]
     Indication: GASTROOESOPHAGEAL REFLUX DISEASE
     Route: 048
     Dates: start: 20100101
  2. NEXIUM [Suspect]
     Route: 048

REACTIONS (3)
  - ABDOMINAL PAIN [None]
  - ABDOMINAL DISTENSION [None]
  - INTENTIONAL DRUG MISUSE [None]
